FAERS Safety Report 4516421-2 (Version None)
Quarter: 2004Q4

REPORT INFORMATION
  Report Type: 
  Country: None (occurrence: None)
  Receive Date: 20041202
  Receipt Date: 20040513
  Transmission Date: 20050328
  Serious: Yes (Other)
  Sender: FDA-Public Use
  Company Number: US-GLAXOSMITHKLINE-A0510724A

PATIENT
  Age: 69 Year
  Sex: Female

DRUGS (6)
  1. AUGMENTIN '125' [Suspect]
     Dosage: 2TAB TWICE PER DAY
     Route: 048
     Dates: start: 20040510
  2. FOSAMAX [Concomitant]
  3. FOLIC ACID [Concomitant]
  4. PRAVACHOL [Concomitant]
  5. CENTRUM MVI [Concomitant]
  6. VIACTIV [Concomitant]

REACTIONS (2)
  - COLITIS [None]
  - FREQUENT BOWEL MOVEMENTS [None]
